FAERS Safety Report 5716557-4 (Version None)
Quarter: 2008Q2

REPORT INFORMATION
  Report Type: 
  Country: None (occurrence: None)
  Receive Date: 20080424
  Receipt Date: 20080415
  Transmission Date: 20081010
  Serious: Yes (Hospitalization)
  Sender: FDA-Public Use
  Company Number: GB-SANOFI-SYNTHELABO-A01200804337

PATIENT
  Age: 82 Year
  Sex: Male

DRUGS (2)
  1. ASPIRIN [Concomitant]
     Indication: DRUG USE FOR UNKNOWN INDICATION
     Route: 065
  2. PLAVIX [Suspect]
     Indication: CEREBROVASCULAR ACCIDENT
     Dosage: UNK
     Route: 048

REACTIONS (1)
  - RECTAL CANCER [None]
